FAERS Safety Report 7691688-0 (Version None)
Quarter: 2011Q3

REPORT INFORMATION
  Report Type: 
  Country: None (occurrence: None)
  Receive Date: 20110818
  Receipt Date: 20100119
  Transmission Date: 20111222
  Serious: Yes (Other)
  Sender: FDA-Public Use
  Company Number: CA-GLAXOSMITHKLINE-A0840347A

PATIENT
  Sex: Female

DRUGS (11)
  1. FERROUS SULFATE TAB [Concomitant]
     Route: 065
  2. ONDANSETRON [Concomitant]
     Route: 065
  3. XELODA [Suspect]
     Indication: PRODUCT USED FOR UNKNOWN INDICATION
     Dosage: 1150MG TWICE PER DAY
     Route: 065
     Dates: end: 20110815
  4. COLACE [Concomitant]
     Route: 065
  5. ZOMETA [Concomitant]
     Route: 065
  6. TYKERB [Suspect]
     Indication: BREAST CANCER METASTATIC
     Dosage: 1250MG PER DAY
     Route: 048
     Dates: start: 20100113, end: 20110815
  7. CALCIUM + MAGNESIUM [Concomitant]
     Route: 065
  8. VITAMIN D [Concomitant]
     Route: 065
  9. FISH OIL [Concomitant]
     Route: 065
  10. NAPROXEN (ALEVE) [Concomitant]
     Route: 065
  11. MULTI-VITAMINS [Concomitant]
     Route: 065

REACTIONS (6)
  - DIARRHOEA [None]
  - CONSTIPATION [None]
  - METASTASES TO LIVER [None]
  - MUSCLE SPASMS [None]
  - NEOPLASM MALIGNANT [None]
  - METASTASES TO BONE [None]
